FAERS Safety Report 17762648 (Version 1)
Quarter: 2020Q2

REPORT INFORMATION
  Report Type: Report from Study
  Country: TW (occurrence: TW)
  Receive Date: 20200508
  Receipt Date: 20200508
  Transmission Date: 20200714
  Serious: Yes (Other)
  Sender: FDA-Public Use
  Company Number: TW-ROCHE-2583860

PATIENT
  Age: 64 Year
  Sex: Female

DRUGS (8)
  1. ALIMTA [Concomitant]
     Active Substance: PEMETREXED DISODIUM
     Indication: NON-SMALL CELL LUNG CANCER
     Route: 041
     Dates: start: 20170711
  2. CISPLATIN. [Concomitant]
     Active Substance: CISPLATIN
     Indication: NON-SMALL CELL LUNG CANCER
     Route: 065
     Dates: start: 20170711
  3. CARBOPLATIN. [Concomitant]
     Active Substance: CARBOPLATIN
     Indication: NON-SMALL CELL LUNG CANCER METASTATIC
     Dosage: 4.5 AUC
     Route: 041
     Dates: start: 20190410
  4. AVASTIN [Suspect]
     Active Substance: BEVACIZUMAB
     Indication: NON-SMALL CELL LUNG CANCER METASTATIC
     Dosage: ALTERNATE BETWEEN 400MG AND 300MG PER CYCLE
     Route: 041
     Dates: start: 20181128, end: 20190220
  5. ALOXI [Concomitant]
     Active Substance: PALONOSETRON HYDROCHLORIDE
     Route: 041
     Dates: start: 20200408
  6. TECENTRIQ [Suspect]
     Active Substance: ATEZOLIZUMAB
     Indication: NON-SMALL CELL LUNG CANCER METASTATIC
     Route: 041
     Dates: start: 20171120
  7. RAMUCIRUMAB [Concomitant]
     Active Substance: RAMUCIRUMAB
     Indication: NON-SMALL CELL LUNG CANCER METASTATIC
     Route: 065
     Dates: start: 20180620, end: 20181128
  8. AVASTIN [Suspect]
     Active Substance: BEVACIZUMAB
     Dosage: ALTERNATE BETWEEN 400MG AND 300MG PER CYCLE
     Route: 041
     Dates: start: 20190227

REACTIONS (13)
  - Alanine aminotransferase increased [Unknown]
  - Hyponatraemia [Unknown]
  - Anaemia [Unknown]
  - Alopecia [Unknown]
  - Diarrhoea [Unknown]
  - Hyperkalaemia [Unknown]
  - Decreased appetite [Unknown]
  - Aspartate aminotransferase increased [Unknown]
  - Cortisol decreased [Unknown]
  - Malaise [Unknown]
  - Fatigue [Recovered/Resolved]
  - Nasal herpes [Unknown]
  - Constipation [Unknown]

NARRATIVE: CASE EVENT DATE: 20171213
